FAERS Safety Report 19551638 (Version 1)
Quarter: 2021Q3

REPORT INFORMATION
  Report Type: Spontaneous
  Country: US (occurrence: US)
  Receive Date: 20210715
  Receipt Date: 20210715
  Transmission Date: 20211014
  Serious: Yes (Other)
  Sender: FDA-Public Use
  Company Number: US-RECKITT BENCKISER HEALTHCARE INT LIMITED-RB-90718-2021

PATIENT
  Age: 18 Year

DRUGS (2)
  1. DELSYM [Suspect]
     Active Substance: DEXTROMETHORPHAN
     Indication: DRUG ABUSE
     Dosage: TOOK FOR 2 WEEKS
     Route: 048
  2. MUCINEX [Suspect]
     Active Substance: GUAIFENESIN
     Indication: DRUG ABUSE
     Dosage: TOOK FOR 2 WEEKS
     Route: 048

REACTIONS (1)
  - Drug abuse [Unknown]
